FAERS Safety Report 7334570-0 (Version None)
Quarter: 2011Q1

REPORT INFORMATION
  Report Type: 
  Country: None (occurrence: None)
  Receive Date: 20110307
  Receipt Date: 20100813
  Transmission Date: 20110831
  Serious: Yes (Hospitalization)
  Sender: FDA-Public Use
  Company Number: A0875761A

PATIENT
  Sex: Male

DRUGS (1)
  1. REQUIP [Suspect]
     Route: 048

REACTIONS (1)
  - CONFUSIONAL STATE [None]
